FAERS Safety Report 9628301 (Version 4)
Quarter: 2014Q1

REPORT INFORMATION
  Report Type: Spontaneous
  Country: NO (occurrence: NO)
  Receive Date: 20131017
  Receipt Date: 20140121
  Transmission Date: 20141002
  Serious: Yes (Hospitalization, Other)
  Sender: FDA-Public Use
  Company Number: NO-BRISTOL-MYERS SQUIBB COMPANY-19520774

PATIENT
  Age: 81 Year
  Sex: Male

DRUGS (12)
  1. ELIQUIS [Suspect]
     Indication: ANTICOAGULANT THERAPY
     Route: 048
     Dates: start: 20130910, end: 20130912
  2. ALBYL-E [Concomitant]
     Indication: STENT PLACEMENT
     Route: 048
  3. ALBYL-E [Concomitant]
     Indication: PROPHYLAXIS
     Route: 048
  4. AZOPT [Concomitant]
     Dosage: 1DF: 10MG/ML?1 DROP -IO
  5. SPIRIVA [Concomitant]
     Route: 055
  6. TAFLOTAN [Concomitant]
     Dosage: 1DF: 15MG/ML?1DROP-IO
  7. SERETIDE [Concomitant]
     Dosage: 1DF: 50/25 MICROGRAM X2 INH
     Route: 055
  8. ATROVENT [Concomitant]
     Dosage: 1DF: 0.25 MG X4 INH
     Route: 055
  9. BURINEX [Concomitant]
     Route: 048
  10. VENTOLINE [Concomitant]
     Route: 055
  11. PREDNISOLONE [Concomitant]
     Route: 048
  12. TIMOLOL [Concomitant]
     Dosage: IO

REACTIONS (2)
  - Post procedural haemorrhage [Recovered/Resolved]
  - Infection [Unknown]
